FAERS Safety Report 4412519-8 (Version None)
Quarter: 2004Q2

REPORT INFORMATION
  Report Type: 
  Country: None (occurrence: None)
  Receive Date: 20040630
  Receipt Date: 20040426
  Transmission Date: 20050107
  Serious: No
  Sender: FDA-Public Use
  Company Number: 04P-163-0258719-00

PATIENT
  Age: 42 Year
  Sex: Female
  Weight: 64.8644 kg

DRUGS (7)
  1. HUMIRA [Suspect]
     Indication: RHEUMATOID ARTHRITIS
     Dosage: 40 MG, 1 IN 1 WK, SUBCUTANOUS (SEE IMAGE)
     Route: 058
     Dates: start: 20030901, end: 20040201
  2. HUMIRA [Suspect]
     Indication: RHEUMATOID ARTHRITIS
     Dosage: 40 MG, 1 IN 1 WK, SUBCUTANOUS (SEE IMAGE)
     Route: 058
     Dates: start: 20040201
  3. METHOTREXATE [Concomitant]
  4. PREDNISONE [Concomitant]
  5. ROFECOXIB [Concomitant]
  6. ALLOPURINOL [Concomitant]
  7. FEXOFENADINE HYDROCHLORIDE [Concomitant]

REACTIONS (3)
  - CHEST DISCOMFORT [None]
  - DYSPNOEA [None]
  - SINUSITIS [None]
